FAERS Safety Report 5038328-7 (Version None)
Quarter: 2006Q2

REPORT INFORMATION
  Report Type: 
  Country: None (occurrence: None)
  Receive Date: 20060601
  Receipt Date: 20060109
  Transmission Date: 20061013
  Serious: No
  Sender: FDA-Public Use
  Company Number: 2006PV006820

PATIENT
  Age: 66 Year
  Sex: Male

DRUGS (6)
  1. BYETTA [Suspect]
     Indication: DIABETES MELLITUS NON-INSULIN-DEPENDENT
     Dosage: SEE IMAGE
     Route: 058
     Dates: start: 20050901, end: 20051001
  2. BYETTA [Suspect]
     Indication: DIABETES MELLITUS NON-INSULIN-DEPENDENT
     Dosage: SEE IMAGE
     Route: 058
     Dates: start: 20051001
  3. LANTUS [Concomitant]
  4. LANTUS [Concomitant]
  5. METFORMIN [Concomitant]
  6. AMARYL [Concomitant]

REACTIONS (3)
  - BLOOD GLUCOSE INCREASED [None]
  - FEELING JITTERY [None]
  - INITIAL INSOMNIA [None]
